FAERS Safety Report 23299332 (Version 2)
Quarter: 2024Q1

REPORT INFORMATION
  Report Type: Spontaneous
  Country: US (occurrence: US)
  Receive Date: 20231215
  Receipt Date: 20240110
  Transmission Date: 20240410
  Serious: No
  Sender: FDA-Public Use
  Company Number: US-Blueprint Medicines Corporation-1795

PATIENT
  Age: 63 Year
  Sex: Female

DRUGS (1)
  1. AYVAKIT [Suspect]
     Active Substance: AVAPRITINIB
     Indication: Systemic mastocytosis
     Route: 065
     Dates: start: 20230921

REACTIONS (3)
  - Balance disorder [Unknown]
  - Dizziness [Unknown]
  - Middle ear effusion [Recovered/Resolved]

NARRATIVE: CASE EVENT DATE: 20231205
